FAERS Safety Report 5787405-1 (Version None)
Quarter: 2008Q2

REPORT INFORMATION
  Report Type: 
  Country: None (occurrence: None)
  Receive Date: 20080625
  Receipt Date: 20080617
  Transmission Date: 20081010
  Serious: Yes (Death, Hospitalization)
  Sender: FDA-Public Use
  Company Number: US-ASTRAZENECA-2007UW24267

PATIENT
  Age: 81 Year
  Sex: Male

DRUGS (2)
  1. SEROQUEL [Suspect]
     Dosage: 25 MG - 50 MG
     Route: 048
  2. COPD MEDICATIONS [Concomitant]

REACTIONS (1)
  - CHRONIC OBSTRUCTIVE PULMONARY DISEASE [None]
